FAERS Safety Report 9408346 (Version 3)
Quarter: 2013Q3

REPORT INFORMATION
  Report Type: Report from Study
  Country: DE (occurrence: DE)
  Receive Date: 20130718
  Receipt Date: 20130723
  Transmission Date: 20140515
  Serious: Yes (Hospitalization, Other)
  Sender: FDA-Public Use
  Company Number: DE-GLAXOSMITHKLINE-B0908725A

PATIENT
  Age: 73 Year
  Sex: Male
  Weight: 75 kg

DRUGS (3)
  1. PAZOPANIB [Suspect]
     Indication: ACUTE MYELOID LEUKAEMIA
     Dosage: 800MG PER DAY
     Route: 048
     Dates: start: 20130508
  2. PANTOPRAZOL [Concomitant]
     Indication: PROPHYLAXIS
     Dosage: 80MG PER DAY
     Route: 048
     Dates: end: 20130717
  3. RAMIPRIL [Concomitant]
     Indication: HYPERTENSION
     Dosage: 5MG PER DAY
     Route: 048
     Dates: end: 20130717

REACTIONS (1)
  - General physical health deterioration [Recovered/Resolved]
